FAERS Safety Report 5781548-4 (Version None)
Quarter: 2008Q2

REPORT INFORMATION
  Report Type: 
  Country: None (occurrence: None)
  Receive Date: 20080623
  Receipt Date: 20070516
  Transmission Date: 20081010
  Serious: No
  Sender: FDA-Public Use
  Company Number: US-ASTRAZENECA-2007UW12159

PATIENT
  Age: 56 Year
  Sex: Female
  Weight: 59.9 kg

DRUGS (4)
  1. RHINOCORT [Suspect]
     Indication: SINUS DISORDER
     Route: 045
     Dates: start: 20070515
  2. PRILOSEC [Concomitant]
     Route: 048
  3. CLARITIN [Concomitant]
  4. FEMHRT [Concomitant]

REACTIONS (1)
  - HEADACHE [None]
